FAERS Safety Report 22135713 (Version 1)
Quarter: 2023Q1

REPORT INFORMATION
  Report Type: Spontaneous
  Country: US (occurrence: US)
  Receive Date: 20230324
  Receipt Date: 20230324
  Transmission Date: 20230417
  Serious: Yes (Hospitalization)
  Sender: FDA-Public Use
  Company Number: US-AMNEAL PHARMACEUTICALS-2023-AMRX-00881

PATIENT
  Sex: Male

DRUGS (1)
  1. RYTARY [Suspect]
     Active Substance: CARBIDOPA\LEVODOPA
     Indication: Parkinson^s disease
     Dosage: 8 CAPSULES, DAILY
     Route: 048

REACTIONS (4)
  - Adverse event [Unknown]
  - Hallucination [Unknown]
  - Ill-defined disorder [Unknown]
  - Product substitution issue [Unknown]
